FAERS Safety Report 4555453-5 (Version None)
Quarter: 2004Q4

REPORT INFORMATION
  Report Type: 
  Country: None (occurrence: None)
  Receive Date: 20041220
  Receipt Date: 20040330
  Transmission Date: 20050328
  Serious: Yes (Life-Threatening)
  Sender: FDA-Public Use
  Company Number: US-JNJFOC-20040205894

PATIENT
  Sex: Male

DRUGS (1)
  1. RETAVASE (RETEPLASE) LYOPHILIZED POWDER [Suspect]
     Indication: AORTIC BIFURCATION GRAFT
     Dosage: 1/4 UNITS PER HOUR FOR 8-10 HOURS
     Dates: start: 20040201

REACTIONS (1)
  - BLOOD FIBRINOGEN DECREASED [None]
